FAERS Safety Report 16952187 (Version 1)
Quarter: 2019Q4

REPORT INFORMATION
  Report Type: Report from Study
  Country: US (occurrence: US)
  Receive Date: 20191023
  Receipt Date: 20191023
  Transmission Date: 20200122
  Serious: Yes (Hospitalization, Other)
  Sender: FDA-Public Use
  Company Number: US-BAYER-2019-165231

PATIENT
  Age: 77 Year
  Sex: Male

DRUGS (7)
  1. ISOSORBIDE. [Concomitant]
     Active Substance: ISOSORBIDE
     Dosage: UNK
  2. AQUAPHOR (XIPAMIDE) [Concomitant]
     Active Substance: XIPAMIDE
  3. NEXAVAR [Suspect]
     Active Substance: SORAFENIB
     Indication: HEPATOCELLULAR CARCINOMA
     Dosage: DAILY DOSE 600 MG(TAKE 2 TABLETS BY EVERY MORNING, AND 1 TABLET EVERY EVENING)
     Route: 048
     Dates: start: 201908, end: 20190907
  4. NEXAVAR [Suspect]
     Active Substance: SORAFENIB
     Indication: HEPATOCELLULAR CARCINOMA
     Dosage: 200MG DAILY
     Route: 048
     Dates: start: 201909
  5. NEXAVAR [Suspect]
     Active Substance: SORAFENIB
     Indication: HEPATOCELLULAR CARCINOMA
     Dosage: 200 MG, BID
     Route: 048
     Dates: start: 20190825, end: 2019
  6. PROPRANOLOL HCL [Concomitant]
     Active Substance: PROPRANOLOL HYDROCHLORIDE
     Dosage: UNK
  7. ISOSORBIDE DINITRATE. [Concomitant]
     Active Substance: ISOSORBIDE DINITRATE
     Dosage: UNK

REACTIONS (13)
  - Gait disturbance [Not Recovered/Not Resolved]
  - Palmar-plantar erythrodysaesthesia syndrome [None]
  - Paraesthesia [Not Recovered/Not Resolved]
  - Constipation [None]
  - Skin disorder [Not Recovered/Not Resolved]
  - Skin laceration [None]
  - Faeces discoloured [Recovered/Resolved]
  - Wound infection [None]
  - Skin disorder [None]
  - Skin ulcer [Unknown]
  - Incorrect product administration duration [None]
  - Blister [Recovering/Resolving]
  - Off label use [None]

NARRATIVE: CASE EVENT DATE: 20190825
